FAERS Safety Report 4828048-3 (Version None)
Quarter: 2005Q4

REPORT INFORMATION
  Report Type: 
  Country: None (occurrence: None)
  Receive Date: 20051110
  Receipt Date: 20051028
  Transmission Date: 20060501
  Serious: Yes (Other)
  Sender: FDA-Public Use
  Company Number: 2005148345

PATIENT
  Age: 14 Year
  Sex: Female
  Weight: 55.3388 kg

DRUGS (1)
  1. DRAMAMINE [Suspect]
     Dosage: 24 TABLETS ONCE, ORAL
     Route: 048
     Dates: start: 20051028, end: 20051028

REACTIONS (1)
  - SPEECH DISORDER [None]
